FAERS Safety Report 9214345 (Version 1)
Quarter: 2013Q2

REPORT INFORMATION
  Report Type: Spontaneous
  Country: CN (occurrence: CN)
  Receive Date: 20130405
  Receipt Date: 20130405
  Transmission Date: 20140414
  Serious: Yes (Other)
  Sender: FDA-Public Use
  Company Number: JP-ASTRAZENECA-2013SE21419

PATIENT
  Age: 72 Year
  Sex: Female

DRUGS (2)
  1. BLOPRESS [Suspect]
     Indication: HYPERTENSION
     Route: 048
     Dates: start: 20130306, end: 20130321
  2. NIFEDIPINE GITS [Concomitant]
     Route: 065

REACTIONS (3)
  - Hypoaesthesia [Not Recovered/Not Resolved]
  - Mouth ulceration [Recovered/Resolved]
  - Rash [Recovering/Resolving]
